FAERS Safety Report 13849042 (Version 2)
Quarter: 2017Q3

REPORT INFORMATION
  Report Type: Report from Study
  Country: US (occurrence: US)
  Receive Date: 20170809
  Receipt Date: 20170822
  Transmission Date: 20171127
  Serious: Yes (Other)
  Sender: FDA-Public Use
  Company Number: PHHY2016US183862

PATIENT

DRUGS (1)
  1. ILEVRO [Suspect]
     Active Substance: NEPAFENAC
     Indication: PRODUCT USED FOR UNKNOWN INDICATION
     Route: 065

REACTIONS (6)
  - Punctate keratitis [Unknown]
  - Ocular toxicity [Unknown]
  - Vision blurred [Unknown]
  - Corneal disorder [Unknown]
  - Eye irritation [Unknown]
  - Eye pain [Unknown]
